FAERS Safety Report 4549308-X (Version None)
Quarter: 2004Q4

REPORT INFORMATION
  Report Type: 
  Country: None (occurrence: None)
  Receive Date: 20041230
  Receipt Date: 20040615
  Transmission Date: 20050328
  Serious: Yes (Death)
  Sender: FDA-Public Use
  Company Number: 04-06-0858

PATIENT
  Age: 76 Year
  Sex: Male

DRUGS (2)
  1. CLOZAPINE [Suspect]
     Indication: ABNORMAL BEHAVIOUR
     Dosage: 12.5-37.5MG Q ORAL
     Route: 048
     Dates: start: 20020301, end: 20040501
  2. CLOZAPINE [Suspect]
     Indication: PARKINSON'S DISEASE
     Dosage: 12.5-37.5MG Q ORAL
     Route: 048
     Dates: start: 20020301, end: 20040501

REACTIONS (1)
  - PRE-EXISTING DISEASE [None]
